FAERS Safety Report 4417879-X (Version None)
Quarter: 2004Q2

REPORT INFORMATION
  Report Type: 
  Country: None (occurrence: None)
  Receive Date: 20040621
  Receipt Date: 20040525
  Transmission Date: 20050107
  Serious: Yes (Death, Other)
  Sender: FDA-Public Use
  Company Number: PHEH2004US04942

PATIENT
  Age: 85 Year
  Sex: Male
  Weight: 65.8 kg

DRUGS (18)
  1. ZOMETA [Suspect]
     Indication: METASTASES TO BONE
     Dosage: 4 MG MONTHLY, INTRAVENOUS
     Route: 042
     Dates: start: 20020927, end: 20030925
  2. LUPRON [Concomitant]
  3. OXYBUTYNIN (OXYBUTYNIN) [Concomitant]
  4. CASODEX [Concomitant]
  5. SIMVASTATIN [Concomitant]
  6. DIGITEK [Concomitant]
  7. ATACAND [Concomitant]
  8. PRILOSEC [Concomitant]
  9. ECOTRIN [Concomitant]
  10. PREDNISONE [Concomitant]
  11. MITOXANTRONE [Concomitant]
  12. TAXOTERE [Concomitant]
  13. EPOGEN [Concomitant]
  14. BENADRYL COMPLEX [Concomitant]
  15. ZOFRAN [Concomitant]
  16. DECADRON [Concomitant]
  17. TAGAMET [Concomitant]
  18. VICODIN [Concomitant]

REACTIONS (8)
  - BONE DEBRIDEMENT [None]
  - BONE DISORDER [None]
  - CONSTIPATION [None]
  - OSTEOMYELITIS CHRONIC [None]
  - OSTEONECROSIS [None]
  - PAIN [None]
  - PROSTATE CANCER METASTATIC [None]
  - TOOTH EXTRACTION [None]
